FAERS Safety Report 15546438 (Version 1)
Quarter: 2018Q4

REPORT INFORMATION
  Report Type: Spontaneous
  Country: US (occurrence: US)
  Receive Date: 20181018
  Receipt Date: 20181018
  Transmission Date: 20190205
  Serious: Yes (Life-Threatening, Hospitalization, Disabling, Other)
  Sender: FDA-Public Use
  Company Number: None

PATIENT
  Age: 44 Year
  Sex: Male
  Weight: 95.4 kg

DRUGS (3)
  1. RESPERIDONE 4 MG [Suspect]
     Active Substance: RISPERIDONE
  2. RISPERDAL CONSTA [Suspect]
     Active Substance: RISPERIDONE
     Indication: SCHIZOPHRENIA
     Dosage: QUANTITY:1 TABLET(S); AT BEDTIME?
     Route: 048
  3. BABY ASPIRIN [Concomitant]
     Active Substance: ASPIRIN

REACTIONS (7)
  - Disturbance in attention [None]
  - Abnormal behaviour [None]
  - Speech disorder [None]
  - Restlessness [None]
  - Increased appetite [None]
  - Dysphagia [None]
  - Skin exfoliation [None]

NARRATIVE: CASE EVENT DATE: 20181018
